FAERS Safety Report 10189087 (Version 1)
Quarter: 2014Q2

REPORT INFORMATION
  Report Type: Spontaneous
  Country: DE (occurrence: DE)
  Receive Date: 20140522
  Receipt Date: 20140522
  Transmission Date: 20141212
  Serious: Yes (Other)
  Sender: FDA-Public Use
  Company Number: DE-JNJFOC-20140506470

PATIENT
  Age: 66 Year
  Sex: Male
  Weight: 75 kg

DRUGS (2)
  1. RISPERDAL [Suspect]
     Indication: PRODUCT USED FOR UNKNOWN INDICATION
     Route: 048
     Dates: start: 20140509, end: 20140509
  2. SEROQUEL [Suspect]
     Indication: PRODUCT USED FOR UNKNOWN INDICATION
     Route: 065
     Dates: start: 20140509, end: 20140509

REACTIONS (5)
  - Suicide attempt [Unknown]
  - Intentional overdose [Unknown]
  - Hypotension [Unknown]
  - Tachycardia [Unknown]
  - Somnolence [Unknown]
